FAERS Safety Report 5531253-4 (Version None)
Quarter: 2007Q4

REPORT INFORMATION
  Report Type: 
  Country: None (occurrence: None)
  Receive Date: 20071127
  Receipt Date: 20071112
  Transmission Date: 20080405
  Serious: Yes (Other)
  Sender: FDA-Public Use
  Company Number: 2007S1011743

PATIENT
  Age: 54 Year
  Sex: Male

DRUGS (6)
  1. CITALOPRAM HYDROBROMIDE [Suspect]
     Indication: DEPRESSION
     Dosage: 20 MG; ORAL
     Route: 048
     Dates: start: 20071004, end: 20071004
  2. BENADRYL [Concomitant]
  3. BENDROFLUMETHIAZIDE [Concomitant]
  4. ENALAPRIL [Concomitant]
  5. RAMIPRIL [Concomitant]
  6. SIMVASTATIN [Concomitant]

REACTIONS (4)
  - FEELING HOT [None]
  - HYPERHIDROSIS [None]
  - MUSCLE SPASMS [None]
  - TREMOR [None]
